FAERS Safety Report 17455102 (Version 1)
Quarter: 2020Q1

REPORT INFORMATION
  Report Type: Spontaneous
  Country: BR (occurrence: BR)
  Receive Date: 20200225
  Receipt Date: 20200225
  Transmission Date: 20200409
  Serious: Yes (Other)
  Sender: FDA-Public Use
  Company Number: BR-VIIV HEALTHCARE LIMITED-BR2020AMR005473

PATIENT
  Sex: Male

DRUGS (1)
  1. DOLUTEGRAVIR [Suspect]
     Active Substance: DOLUTEGRAVIR
     Indication: HIV INFECTION
     Dosage: UNK

REACTIONS (5)
  - Hepatitis C [Recovering/Resolving]
  - Nausea [Unknown]
  - Headache [Unknown]
  - Asthenia [Unknown]
  - Malaise [Unknown]
